FAERS Safety Report 24297568 (Version 2)
Quarter: 2024Q4

REPORT INFORMATION
  Report Type: Spontaneous
  Country: FR (occurrence: FR)
  Receive Date: 20240909
  Receipt Date: 20241030
  Transmission Date: 20250115
  Serious: Yes (Hospitalization, Other)
  Sender: NOVARTIS
  Company Number: FR-GILEAD-2023-0654716

PATIENT
  Age: 45 Year
  Sex: Female

DRUGS (6)
  1. RYDAPT [Suspect]
     Active Substance: MIDOSTAURIN
     Indication: Acute myeloid leukaemia
     Dosage: 100 MG (1 EVERY 1 DAYS), ONCE DAILY
     Route: 048
     Dates: start: 20231115, end: 20231121
  2. AMBISOME [Suspect]
     Active Substance: AMPHOTERICIN B
     Indication: Infection
     Dosage: 250 MG, QD
     Route: 042
     Dates: start: 20231117, end: 20231121
  3. CYTARABINE [Suspect]
     Active Substance: CYTARABINE
     Indication: Acute myeloid leukaemia
     Dosage: 400 MG, QD (ONCE DAILY)
     Route: 042
     Dates: start: 20231107, end: 20231113
  4. DAUNORUBICIN [Suspect]
     Active Substance: DAUNORUBICIN
     Indication: Acute myeloid leukaemia
     Dosage: 180 MG (1 EVERY 1 DAYS), ONCE DAILY
     Route: 042
     Dates: start: 20231108, end: 20231110
  5. PIPERACILLIN SODIUM\TAZOBACTAM SODIUM [Suspect]
     Active Substance: PIPERACILLIN SODIUM\TAZOBACTAM SODIUM
     Indication: Infection
     Dosage: 16 G, QD
     Route: 042
     Dates: start: 20231109, end: 20231121
  6. ACYCLOVIR [Concomitant]
     Active Substance: ACYCLOVIR
     Indication: Product used for unknown indication
     Dosage: 250 MG, Q8H
     Route: 042
     Dates: start: 20231118, end: 20231121

REACTIONS (1)
  - Hyperbilirubinaemia [Recovering/Resolving]

NARRATIVE: CASE EVENT DATE: 20231122
